FAERS Safety Report 6826154-5 (Version None)
Quarter: 2010Q3

REPORT INFORMATION
  Report Type: 
  Country: None (occurrence: None)
  Receive Date: 20100709
  Receipt Date: 20100707
  Transmission Date: 20110219
  Serious: Yes (Life-Threatening, Other)
  Sender: FDA-Public Use
  Company Number: IE-B.I. PHARMACEUTICALS,INC./RIDGEFIELD-2010-UK-00624UK

PATIENT
  Age: 74 Year
  Sex: Male
  Weight: 95 kg

DRUGS (5)
  1. COMBIVENT [Suspect]
     Indication: WHEEZING
     Dosage: DOSE: 2.5ML.
     Route: 055
     Dates: start: 20100624, end: 20100624
  2. SPIRIVA [Concomitant]
     Indication: WHEEZING
     Dosage: ONCE DAILY.
     Route: 055
     Dates: start: 20100615
  3. VENTOLIN [Concomitant]
     Indication: WHEEZING
     Dosage: 2 PUFFS BD PRN.
     Route: 055
     Dates: start: 20100615
  4. STEROID (NOT SPECIFIED) [Concomitant]
  5. DICLOFENAC SODIUM [Concomitant]
     Indication: ANALGESIC THERAPY
     Dosage: 50MG TID PRN.
     Route: 048

REACTIONS (4)
  - BLOOD PRESSURE INCREASED [None]
  - BRONCHOSPASM [None]
  - DYSPNOEA [None]
  - STRIDOR [None]
